FAERS Safety Report 17900095 (Version 1)
Quarter: 2020Q2

REPORT INFORMATION
  Report Type: Spontaneous
  Country: US (occurrence: US)
  Receive Date: 20200616
  Receipt Date: 20200616
  Transmission Date: 20200714
  Serious: Yes (Other)
  Sender: FDA-Public Use
  Company Number: None

PATIENT
  Age: 20 Year
  Weight: 65.25 kg

DRUGS (3)
  1. VITAMIN D [Concomitant]
     Active Substance: VITAMIN D NOS
  2. AMOXICILLIN-CLAVULANIC ACID 875-125MG TAB COMMON: AUGMENTIN [Suspect]
     Active Substance: AMOXICILLIN\CLAVULANATE POTASSIUM
     Indication: URINARY TRACT INFECTION
     Dosage: ?          QUANTITY:1 TABLET(S);?
     Route: 048
     Dates: start: 20200605, end: 20200615
  3. TESTOSTERONE. [Concomitant]
     Active Substance: TESTOSTERONE

REACTIONS (2)
  - Psychotic behaviour [None]
  - Anxiety [None]

NARRATIVE: CASE EVENT DATE: 20200612
